FAERS Safety Report 5377853-6 (Version None)
Quarter: 2007Q2

REPORT INFORMATION
  Report Type: 
  Country: None (occurrence: None)
  Receive Date: 20070629
  Receipt Date: 20070618
  Transmission Date: 20071010
  Serious: Yes (Hospitalization)
  Sender: FDA-Public Use
  Company Number: B0476188A

PATIENT
  Age: 58 Year
  Sex: Female

DRUGS (3)
  1. LITHIUM SALT (FORMULATION UNKNOWN) (GENERIC) ( LITHIUM SALT) [Suspect]
     Indication: BIPOLAR DISORDER
     Dosage: THREE TIMES PER DAY
  2. PROPAFENONE (FORMULATION UNKNOWN) (PROPAFENONE) [Suspect]
  3. AMIODARONE HCL [Concomitant]

REACTIONS (6)
  - BRUGADA SYNDROME [None]
  - ELECTROCARDIOGRAM QRS COMPLEX SHORTENED [None]
  - NO THERAPEUTIC RESPONSE [None]
  - TACHYCARDIA PAROXYSMAL [None]
  - UNEVALUABLE EVENT [None]
  - VENTRICULAR PRE-EXCITATION [None]
